FAERS Safety Report 7098770-X (Version None)
Quarter: 2010Q4

REPORT INFORMATION
  Report Type: 
  Country: None (occurrence: None)
  Receive Date: 20101112
  Receipt Date: 20101108
  Transmission Date: 20110411
  Serious: Yes (Death)
  Sender: FDA-Public Use
  Company Number: US-CELGENEUS-163-21880-10101329

PATIENT
  Age: 71 Year
  Sex: Male

DRUGS (4)
  1. REVLIMID [Suspect]
     Indication: MULTIPLE MYELOMA
     Route: 048
     Dates: start: 20100520
  2. REVLIMID [Suspect]
     Route: 048
     Dates: start: 20100812, end: 20100901
  3. DEXAMETHASONE [Concomitant]
     Indication: MULTIPLE MYELOMA
     Route: 065
     Dates: start: 20100520, end: 20100902
  4. CARDIAC MEDICATIONS [Concomitant]
     Route: 065
     Dates: end: 20100101

REACTIONS (1)
  - CARDIAC ARREST [None]
